FAERS Safety Report 4386538-4 (Version None)
Quarter: 2004Q2

REPORT INFORMATION
  Report Type: 
  Country: None (occurrence: None)
  Receive Date: 20040629
  Receipt Date: 20040602
  Transmission Date: 20050107
  Serious: Yes (Death, Life-Threatening, Other)
  Sender: FDA-Public Use
  Company Number: 200411743EU

PATIENT
  Age: 94 Year
  Sex: Female

DRUGS (6)
  1. FUROSEMIDE [Suspect]
     Indication: CARDIAC FAILURE
     Route: 048
     Dates: start: 20020910, end: 20030901
  2. ENALAPRIL MALEATE [Concomitant]
     Route: 048
     Dates: start: 20020910
  3. FOSAMAX [Concomitant]
     Route: 048
     Dates: start: 20020910
  4. CETIRIZINE HCL [Concomitant]
     Route: 062
     Dates: start: 20030601
  5. PREDNISOLONE [Concomitant]
     Dates: start: 20020830
  6. ASPIRIN [Concomitant]
     Route: 048
     Dates: start: 20020910

REACTIONS (4)
  - DEHYDRATION [None]
  - PRURITUS [None]
  - RENAL FAILURE [None]
  - SOMNOLENCE [None]
